FAERS Safety Report 25440947 (Version 1)
Quarter: 2025Q2

REPORT INFORMATION
  Report Type: Spontaneous
  Country: CN (occurrence: CN)
  Receive Date: 20250616
  Receipt Date: 20250616
  Transmission Date: 20250717
  Serious: Yes (Other)
  Sender: COHERUS
  Company Number: CN-SHANGHAI JUNSHI BIOSCIENCES CO., LTD.-CN2025014409

PATIENT

DRUGS (2)
  1. TORIPALIMAB [Suspect]
     Active Substance: TORIPALIMAB
     Indication: Renal cancer
     Route: 041
  2. TORIPALIMAB [Suspect]
     Active Substance: TORIPALIMAB
     Dosage: 160 MG, Q3W
     Route: 041
     Dates: start: 20241129

REACTIONS (1)
  - Vitiligo [Not Recovered/Not Resolved]
